FAERS Safety Report 7239793-7 (Version None)
Quarter: 2011Q1

REPORT INFORMATION
  Report Type: 
  Country: None (occurrence: None)
  Receive Date: 20110122
  Receipt Date: 20101111
  Transmission Date: 20110831
  Serious: No
  Sender: FDA-Public Use
  Company Number: US-ALLERGAN-1014657US

PATIENT
  Age: 50 Year
  Sex: Female

DRUGS (3)
  1. LATISSE [Suspect]
     Indication: GROWTH OF EYELASHES
     Dosage: 1 GTT, QHS
     Dates: start: 20101110
  2. OPTI-FREE REPLENISH EYE DROPS [Concomitant]
  3. LATISSE [Suspect]

REACTIONS (2)
  - EYELID OEDEMA [None]
  - EYE DISCHARGE [None]
